FAERS Safety Report 7660181-3 (Version None)
Quarter: 2011Q3

REPORT INFORMATION
  Report Type: 
  Country: None (occurrence: None)
  Receive Date: 20110805
  Receipt Date: 20110801
  Transmission Date: 20111222
  Serious: Yes (Death, Other)
  Sender: FDA-Public Use
  Company Number: PHHY2011DE53675

PATIENT
  Sex: Female
  Weight: 111 kg

DRUGS (4)
  1. RASILEZ [Suspect]
     Indication: HYPERTENSION
     Route: 048
  2. STATINS [Concomitant]
     Dosage: UNK UKN, UNK
  3. ACE INHIBITOR NOS [Concomitant]
     Dosage: UNK UKN, UNK
  4. NSAID'S [Concomitant]
     Dosage: UNK UKN, UNK

REACTIONS (4)
  - HYPOTENSION [None]
  - ELECTROCARDIOGRAM QRS COMPLEX PROLONGED [None]
  - DYSPNOEA [None]
  - BENIGN NEOPLASM [None]
